FAERS Safety Report 16914071 (Version 2)
Quarter: 2019Q4

REPORT INFORMATION
  Report Type: Report from Study
  Country: CO (occurrence: CO)
  Receive Date: 20191014
  Receipt Date: 20191101
  Transmission Date: 20200122
  Serious: Yes (Hospitalization, Other)
  Sender: FDA-Public Use
  Company Number: CO-ASTELLAS-2019US040436

PATIENT
  Age: 25 Year
  Sex: Female
  Weight: 52 kg

DRUGS (8)
  1. TACROLIMUS. [Suspect]
     Active Substance: TACROLIMUS
     Dosage: 8 MG (1 CAPSULE OF 5 MG AND 3 CAPSULES OF 1MG) ONCE DAILY
     Route: 048
     Dates: start: 201908
  2. DILTIAZEM. [Concomitant]
     Active Substance: DILTIAZEM
     Indication: BLOOD PRESSURE MEASUREMENT
     Dosage: 1 UNK, EVERY 8 HOURS
     Route: 048
     Dates: start: 20190305
  3. MYCOPHENOLATE [Concomitant]
     Active Substance: MYCOPHENOLIC ACID
     Indication: IMMUNOSUPPRESSANT DRUG THERAPY
     Route: 048
     Dates: start: 20190305
  4. MAGNESIUM OXIDE. [Concomitant]
     Active Substance: MAGNESIUM OXIDE
     Indication: MINERAL SUPPLEMENTATION
     Dosage: 1 UNK, ONCE DAILY
     Route: 048
     Dates: start: 201904
  5. BIOTIN [Concomitant]
     Active Substance: BIOTIN
     Indication: ALOPECIA
     Dosage: 1 UNK, ONCE DAILY
     Route: 048
     Dates: start: 201904
  6. PREDNISOLONE. [Concomitant]
     Active Substance: PREDNISOLONE
     Indication: RENAL TRANSPLANT
     Dosage: 1 UNK, ONCE DAILY
     Route: 048
     Dates: start: 20190305
  7. TACROLIMUS. [Suspect]
     Active Substance: TACROLIMUS
     Indication: RENAL TRANSPLANT
     Dosage: 11 MG (2 CAPSULE OF 5 MG AND 1 CAPSULE OF 1MG) ONCE DAILY
     Route: 048
     Dates: start: 20190306, end: 201908
  8. ISONIAZID W/PYRIDOXINE [Concomitant]
     Active Substance: ISONIAZID\PYRIDOXINE
     Indication: TUBERCULOSIS
     Dosage: 1 UNK, ONCE DAILY
     Route: 048
     Dates: start: 201811, end: 201909

REACTIONS (4)
  - Nephropathy [Recovering/Resolving]
  - BK polyomavirus test [Recovering/Resolving]
  - Blood creatinine increased [Recovering/Resolving]
  - Latent tuberculosis [Recovered/Resolved]

NARRATIVE: CASE EVENT DATE: 201904
